FAERS Safety Report 8592025-X (Version None)
Quarter: 2012Q3

REPORT INFORMATION
  Report Type: 
  Country: None (occurrence: None)
  Receive Date: 20120814
  Receipt Date: 20120810
  Transmission Date: 20120928
  Serious: Yes (Hospitalization)
  Sender: FDA-Public Use
  Company Number: PHHO2012JP002456

PATIENT
  Sex: Male
  Weight: 59 kg

DRUGS (24)
  1. UNASYN [Concomitant]
     Indication: ANTIBIOTIC PROPHYLAXIS
     Dosage: 750 MG, UNK
     Route: 048
     Dates: start: 20120313, end: 20120315
  2. TETUCUR [Concomitant]
     Indication: ANAEMIA
     Dosage: 300 MG, UNK
     Route: 048
     Dates: start: 20120621
  3. ASPIRIN [Concomitant]
     Indication: THROMBOSIS PROPHYLAXIS
     Dosage: 100 MG, UNK
     Route: 048
     Dates: start: 20090422
  4. MUCOSTA [Concomitant]
     Indication: GASTRITIS PROPHYLAXIS
     Dosage: 300 MG, UNK
     Route: 048
     Dates: start: 20120709
  5. MAGNESIUM OXIDE [Concomitant]
     Indication: CONSTIPATION PROPHYLAXIS
     Dosage: 990 MG, UNK
     Route: 048
     Dates: start: 20120301
  6. ALISKIREN [Suspect]
     Indication: CARDIAC FAILURE
     Dosage: UNK
     Route: 048
     Dates: end: 20120110
  7. PLAVIX [Concomitant]
     Indication: THROMBOSIS PROPHYLAXIS
     Dosage: 75 MG, UNK
     Route: 048
     Dates: start: 20090422
  8. JANUVIA [Concomitant]
     Indication: POLYURIA
     Dosage: 100 MG, UNK
     Route: 048
     Dates: start: 20090422
  9. DIART [Concomitant]
     Dosage: 60 MG, QD
     Route: 048
     Dates: start: 20120519
  10. TETUCUR [Concomitant]
     Dosage: 100 MG, UNK
     Route: 048
  11. AMARYL [Concomitant]
     Indication: DIABETES MELLITUS
     Dosage: 2 MG, UNK
     Route: 048
     Dates: start: 20090422
  12. LASIX [Concomitant]
     Indication: POLYURIA
     Dosage: 20 MG, UNK
     Route: 048
     Dates: start: 20120214, end: 20120227
  13. TORSEMIDE [Concomitant]
     Indication: POLYURIA
     Dosage: 4 MG, UNK
     Route: 048
     Dates: start: 20120228
  14. FUROSEMIDE [Concomitant]
     Indication: POLYURIA
     Dosage: 40 MG, UNK
     Route: 048
     Dates: start: 20120519
  15. TRICHLORMETHIAZIDE [Concomitant]
     Indication: POLYURIA
     Dosage: 1 MG, UNK
     Route: 048
     Dates: start: 20120613
  16. ALDACTONE [Concomitant]
     Indication: POLYURIA
     Dosage: 25 MG, UNK
     Route: 048
     Dates: start: 20090422
  17. ALLORINE [Concomitant]
     Indication: GOUT
     Dosage: 100 MG, UNK
     Route: 048
     Dates: start: 20090422
  18. LANSOPRAZOLE [Concomitant]
     Indication: PROPHYLAXIS AGAINST GASTROINTESTINAL ULCER
     Dosage: 15 MG, UNK
     Route: 048
     Dates: start: 20090422
  19. DIART [Concomitant]
     Indication: POLYURIA
     Dosage: 120 MG, UNK
     Route: 048
     Dates: start: 20090422
  20. CARVEDILOL [Concomitant]
     Indication: CARDIAC FAILURE CHRONIC
     Dosage: 1.25 MG, UNK
     Route: 048
     Dates: start: 20120302
  21. ENALAPRIL MALEATE [Suspect]
     Indication: CARDIAC FAILURE
     Dosage: UNK
     Dates: end: 20120110
  22. TORSEMIDE [Concomitant]
     Dosage: 8 MG, UNK
     Route: 048
  23. TANADOPA [Concomitant]
     Indication: CARDIAC FAILURE CHRONIC
     Dosage: 4 G, UNK
     Route: 048
     Dates: start: 20120605
  24. SLOW-K [Concomitant]
     Indication: MINERAL SUPPLEMENTATION
     Dosage: 600 MG, UNK
     Route: 048
     Dates: start: 20120619

REACTIONS (1)
  - CARDIAC FAILURE [None]
